FAERS Safety Report 5284826-0 (Version None)
Quarter: 2007Q2

REPORT INFORMATION
  Report Type: 
  Country: None (occurrence: None)
  Receive Date: 20070403
  Receipt Date: 20070402
  Transmission Date: 20071010
  Serious: Yes (Death, Hospitalization)
  Sender: FDA-Public Use
  Company Number: US-BRISTOL-MYERS SQUIBB COMPANY-13735485

PATIENT
  Sex: Female
  Weight: 50 kg

DRUGS (2)
  1. PRAVACHOL [Suspect]
  2. LIPITOR [Concomitant]

REACTIONS (3)
  - FALL [None]
  - HEAD INJURY [None]
  - PNEUMONIA [None]
